FAERS Safety Report 7777468-6 (Version None)
Quarter: 2011Q3

REPORT INFORMATION
  Report Type: 
  Country: None (occurrence: None)
  Receive Date: 20110926
  Receipt Date: 20110914
  Transmission Date: 20111222
  Serious: Yes (Hospitalization, Other)
  Sender: FDA-Public Use
  Company Number: US-BAYER-2011-028877

PATIENT
  Age: 18 Year
  Sex: Female
  Weight: 93 kg

DRUGS (13)
  1. YAZ [Suspect]
     Indication: CONTRACEPTION
     Dosage: UNK
     Dates: start: 20081101, end: 20100301
  2. YAZ [Suspect]
     Indication: ACNE
  3. NIASPAN [Concomitant]
     Dosage: 500 MG, QD
     Route: 048
     Dates: start: 20100305
  4. SINGULAIR [Concomitant]
     Dosage: 10 MG, QD
     Route: 048
     Dates: end: 20100219
  5. ACCUTANE [Concomitant]
     Dosage: 40 MG, QD
     Route: 048
     Dates: end: 20100219
  6. WELCHOL [Concomitant]
     Dosage: UNK
     Route: 048
     Dates: start: 20100305
  7. METFORMIN HCL [Concomitant]
     Dosage: 1000 MG, BID
     Route: 048
     Dates: end: 20100305
  8. YAZ [Suspect]
     Indication: POLYCYSTIC OVARIES
  9. PEPCID [Concomitant]
     Dosage: 40 MG, BID
     Route: 048
  10. ACYCLOVIR [Concomitant]
     Dosage: UNK
     Route: 048
     Dates: end: 20100305
  11. PRAVASTATIN [Concomitant]
     Dosage: 40 MG, QD
     Route: 048
     Dates: end: 20100305
  12. ZYRTEC [Concomitant]
     Dosage: 10 MG, HS
     Route: 048
     Dates: end: 20100305
  13. LOVAZA [Concomitant]
     Dosage: 2 G, QD
     Route: 048
     Dates: start: 20100305

REACTIONS (6)
  - GALLBLADDER INJURY [None]
  - PAIN [None]
  - NAUSEA [None]
  - CHOLECYSTITIS CHRONIC [None]
  - ABDOMINAL PAIN [None]
  - ABDOMINAL PAIN UPPER [None]
